FAERS Safety Report 23946593 (Version 1)
Quarter: 2024Q2

REPORT INFORMATION
  Report Type: Report from Study
  Country: US (occurrence: US)
  Receive Date: 20240606
  Receipt Date: 20240606
  Transmission Date: 20240716
  Serious: No
  Sender: FDA-Public Use
  Company Number: US-SPRINGWORKS THERAPEUTICS-SW-001374

PATIENT
  Age: 53 Year
  Sex: Female

DRUGS (1)
  1. NIROGACESTAT [Suspect]
     Active Substance: NIROGACESTAT
     Indication: Desmoid tumour
     Dosage: 150 MILLIGRAM, BID
     Route: 048
     Dates: start: 20240223

REACTIONS (15)
  - Depressed mood [Unknown]
  - Hypertension [Unknown]
  - Insomnia [Unknown]
  - Dry mouth [Unknown]
  - Dry throat [Unknown]
  - Nasal dryness [Unknown]
  - Abdominal discomfort [Unknown]
  - Pyrexia [Unknown]
  - Pruritus [Unknown]
  - Malaise [Unknown]
  - Rash [Unknown]
  - Diarrhoea [Unknown]
  - Headache [Unknown]
  - Fatigue [Unknown]
  - Epistaxis [Unknown]

NARRATIVE: CASE EVENT DATE: 20240227
